FAERS Safety Report 9234131 (Version 1)
Quarter: 2013Q2

REPORT INFORMATION
  Report Type: Spontaneous
  Country: US (occurrence: US)
  Receive Date: 20130416
  Receipt Date: 20130416
  Transmission Date: 20140414
  Serious: Yes (Hospitalization, Other)
  Sender: FDA-Public Use
  Company Number: US-ELI_LILLY_AND_COMPANY-US201304003374

PATIENT
  Age: 66 Year
  Sex: Female
  Weight: 102.4 kg

DRUGS (1)
  1. HUMALOG LISPRO [Suspect]
     Dosage: UNK UNK, PRN
     Route: 058

REACTIONS (6)
  - Blood glucose increased [Unknown]
  - Lower limb fracture [Unknown]
  - Fall [Recovered/Resolved]
  - Blood glucose increased [Not Recovered/Not Resolved]
  - Muscle spasms [Unknown]
  - Pain in extremity [Unknown]
